FAERS Safety Report 15311357 (Version 8)
Quarter: 2019Q4

REPORT INFORMATION
  Report Type: Report from Study
  Country: US (occurrence: US)
  Receive Date: 20180823
  Receipt Date: 20191218
  Transmission Date: 20200122
  Serious: Yes (Hospitalization, Other)
  Sender: FDA-Public Use
  Company Number: PHEH2018US034078

PATIENT
  Sex: Male

DRUGS (1)
  1. GLEEVEC [Suspect]
     Active Substance: IMATINIB MESYLATE
     Indication: PRODUCT USED FOR UNKNOWN INDICATION
     Dosage: 100 MG, UNK
     Route: 048

REACTIONS (10)
  - Abdominal discomfort [Unknown]
  - Cognitive disorder [Unknown]
  - Nervous system disorder [Unknown]
  - Neoplasm malignant [Recovered/Resolved]
  - Frequent bowel movements [Not Recovered/Not Resolved]
  - Diarrhoea [Unknown]
  - Musculoskeletal chest pain [Unknown]
  - Gastrointestinal disorder [Unknown]
  - Infection [Unknown]
  - Lethargy [Unknown]
